FAERS Safety Report 12582776 (Version 2)
Quarter: 2016Q3

REPORT INFORMATION
  Report Type: Spontaneous
  Country: IT (occurrence: IT)
  Receive Date: 20160722
  Receipt Date: 20160831
  Transmission Date: 20161109
  Serious: Yes (Other)
  Sender: FDA-Public Use
  Company Number: IT-CELGENEUS-ITA-2016072262

PATIENT
  Age: 12 Year
  Sex: Male
  Weight: 47 kg

DRUGS (6)
  1. THALIDOMIDE CELGENE [Suspect]
     Active Substance: THALIDOMIDE
     Indication: APHTHOUS ULCER
     Route: 048
     Dates: start: 20150601, end: 201601
  2. THALIDOMIDE CELGENE [Suspect]
     Active Substance: THALIDOMIDE
     Indication: OFF LABEL USE
     Route: 048
     Dates: start: 20160129, end: 20160426
  3. FOLIC ACID. [Concomitant]
     Active Substance: FOLIC ACID
     Indication: NEUROPATHY PERIPHERAL
     Route: 065
     Dates: start: 20150601
  4. ONLIGOL [Concomitant]
     Indication: CONSTIPATION
     Route: 065
     Dates: start: 20150301
  5. BE-TOTAL [Concomitant]
     Indication: NEUROPATHY PERIPHERAL
     Route: 048
     Dates: start: 20150601
  6. ZOLOFT [Concomitant]
     Active Substance: SERTRALINE HYDROCHLORIDE
     Indication: PRODUCT USED FOR UNKNOWN INDICATION
     Route: 065

REACTIONS (6)
  - Decreased vibratory sense [Not Recovered/Not Resolved]
  - Vertigo [Unknown]
  - Tremor [Unknown]
  - Constipation [Unknown]
  - Asthenia [Unknown]
  - Mood altered [Unknown]

NARRATIVE: CASE EVENT DATE: 20160129
